FAERS Safety Report 7226928-5 (Version None)
Quarter: 2011Q1

REPORT INFORMATION
  Report Type: 
  Country: None (occurrence: None)
  Receive Date: 20110105
  Receipt Date: 20101218
  Transmission Date: 20110831
  Serious: Yes (Death, Hospitalization, Other)
  Sender: FDA-Public Use
  Company Number: 019071

PATIENT
  Sex: Female

DRUGS (6)
  1. ACETYLSALICYLIC ACID [Concomitant]
  2. RAMIPRIL [Concomitant]
  3. VIMPAT [Suspect]
     Indication: EPILEPSY
  4. ERGENYL [Concomitant]
  5. AMLODIPINE [Concomitant]
  6. SIMVASTATIN [Concomitant]

REACTIONS (1)
  - SYSTEMIC LUPUS ERYTHEMATOSUS [None]
